FAERS Safety Report 7984384-3 (Version None)
Quarter: 2011Q4

REPORT INFORMATION
  Report Type: 
  Country: None (occurrence: None)
  Receive Date: 20111216
  Receipt Date: 20111206
  Transmission Date: 20120403
  Serious: Yes (Other)
  Sender: FDA-Public Use
  Company Number: US-PURDUE-USA-2011-0077871

PATIENT
  Sex: Male
  Weight: 83.9 kg

DRUGS (3)
  1. XANAX [Suspect]
     Indication: DRUG ABUSE
  2. METHADONE HCL [Suspect]
     Indication: DRUG ABUSE
  3. OXYCODONE HCL [Suspect]
     Indication: DRUG ABUSE

REACTIONS (2)
  - DRUG ABUSE [None]
  - DRUG DEPENDENCE [None]
